FAERS Safety Report 15983018 (Version 3)
Quarter: 2019Q1

REPORT INFORMATION
  Report Type: Report from Study
  Country: US (occurrence: US)
  Receive Date: 20190219
  Receipt Date: 20190321
  Transmission Date: 20190418
  Serious: Yes (Hospitalization)
  Sender: FDA-Public Use
  Company Number: US-GILEAD-2019-0389657

PATIENT
  Age: 48 Year
  Sex: Male
  Weight: 81.5 kg

DRUGS (22)
  1. TORADOL [Concomitant]
     Active Substance: KETOROLAC TROMETHAMINE
     Indication: ABDOMINAL PAIN
     Route: 042
     Dates: start: 20190108, end: 20190108
  2. OXYCODONE [Concomitant]
     Active Substance: OXYCODONE
     Indication: ABDOMINAL PAIN
     Route: 048
     Dates: start: 20190108, end: 20190130
  3. TYLENOL PM [Concomitant]
     Active Substance: ACETAMINOPHEN\DIPHENHYDRAMINE
     Indication: INSOMNIA
     Route: 048
     Dates: start: 2017
  4. DOXEPIN HCL [Concomitant]
     Active Substance: DOXEPIN HYDROCHLORIDE
     Indication: INSOMNIA
     Route: 048
     Dates: start: 20181026
  5. ONDANSETRON [Concomitant]
     Active Substance: ONDANSETRON
     Indication: VOMITING
     Route: 048
     Dates: start: 20190108, end: 20190111
  6. EMTRICITABINE/TENOFOVIR ALAFENAMIDE [Suspect]
     Active Substance: EMTRICITABINE\TENOFOVIR
     Indication: HIV INFECTION
     Dosage: 1 DF, QD
     Route: 048
     Dates: start: 20171018, end: 20180424
  7. EMTRICITABINE/TENOFOVIR ALAFENAMIDE [Suspect]
     Active Substance: EMTRICITABINE\TENOFOVIR
     Dosage: 1 DF QD
     Route: 048
     Dates: start: 20180517, end: 20190129
  8. PLACEBO [Suspect]
     Active Substance: UNSPECIFIED INGREDIENT
     Dosage: 1DF QD
     Route: 048
     Dates: start: 20180427, end: 20180515
  9. ALBUTEROL [SALBUTAMOL] [Concomitant]
     Active Substance: ALBUTEROL
     Indication: ASTHMA
     Route: 055
     Dates: start: 20130807
  10. AMITRIPTYLINE [Concomitant]
     Active Substance: AMITRIPTYLINE
     Indication: INSOMNIA
     Route: 048
     Dates: start: 2010
  11. DOLUTEGRAVIR [Suspect]
     Active Substance: DOLUTEGRAVIR
     Indication: HIV INFECTION
     Dosage: 50 MG, QD
     Route: 048
     Dates: start: 20171018, end: 20180424
  12. DOLUTEGRAVIR [Suspect]
     Active Substance: DOLUTEGRAVIR
     Dosage: 50 MG QD
     Route: 048
     Dates: start: 20180517, end: 20190129
  13. PLACEBO [Suspect]
     Active Substance: UNSPECIFIED INGREDIENT
     Dosage: 1 DF QD
     Route: 048
     Dates: start: 20180517, end: 20190129
  14. CELEXA [Concomitant]
     Active Substance: CITALOPRAM HYDROBROMIDE
     Indication: DEPRESSION
     Route: 048
     Dates: start: 20170905
  15. TYLENOL PM [Concomitant]
     Active Substance: ACETAMINOPHEN\DIPHENHYDRAMINE
     Indication: ABDOMINAL PAIN
     Dosage: UNK
     Dates: start: 20180202, end: 20180202
  16. BICTEGRAVIR W/EMTRICITABINE/TENOFOVIR ALAFENAMIDE [Suspect]
     Active Substance: BICTEGRAVIR\EMTRICITABINE\TENOFOVIR ALAFENAMIDE
     Indication: HIV INFECTION
     Dosage: UNK
     Route: 048
     Dates: start: 20190130, end: 20190207
  17. EMTRICITABINE/TENOFOVIR ALAFENAMIDE [Suspect]
     Active Substance: EMTRICITABINE\TENOFOVIR
     Dosage: 1 DF QD
     Route: 048
     Dates: start: 20180427, end: 20180515
  18. ONDANSETRON [Concomitant]
     Active Substance: ONDANSETRON
     Indication: ABDOMINAL PAIN
     Dosage: UNK
     Dates: start: 20190202, end: 20190202
  19. VALTREX [Concomitant]
     Active Substance: VALACYCLOVIR HYDROCHLORIDE
     Indication: HERPES SIMPLEX
     Route: 048
     Dates: start: 20170905
  20. BICTEGRAVIR W/EMTRICITABINE/TENOFOVIR ALAFENAMIDE [Suspect]
     Active Substance: BICTEGRAVIR\EMTRICITABINE\TENOFOVIR ALAFENAMIDE
     Dosage: UNK
     Route: 048
     Dates: start: 20190307
  21. PLACEBO [Suspect]
     Active Substance: UNSPECIFIED INGREDIENT
     Indication: HIV INFECTION
     Dosage: 1 DF, QD
     Route: 048
     Dates: start: 20171018, end: 20180424
  22. DOLUTEGRAVIR [Suspect]
     Active Substance: DOLUTEGRAVIR
     Dosage: 50 MG QD
     Route: 048
     Dates: start: 20180427, end: 20180515

REACTIONS (3)
  - Abdominal pain [Recovered/Resolved]
  - Liver function test increased [Recovering/Resolving]
  - Cholangitis acute [Recovered/Resolved]

NARRATIVE: CASE EVENT DATE: 20190202
